FAERS Safety Report 10686695 (Version 2)
Quarter: 2015Q1

REPORT INFORMATION
  Report Type: Report from Study
  Country: BR (occurrence: BR)
  Receive Date: 20150101
  Receipt Date: 20150101
  Transmission Date: 20150720
  Serious: Yes (Hospitalization)
  Sender: FDA-Public Use
  Company Number: BR-GLAXOSMITHKLINE-BR2014GSK011588

PATIENT
  Sex: Female
  Weight: 47 kg

DRUGS (5)
  1. NASONEX (MOMETASONE) [Concomitant]
     Indication: RHINITIS
     Dosage: 1 PUFF(S), QD
     Route: 055
  2. BETAMETHASONE + DEXCHLORPHENIRAMINE MALEATE [Concomitant]
  3. PREDSIM [Concomitant]
     Active Substance: PREDNISOLONE
  4. RELVAR ELLIPTA [Suspect]
     Active Substance: FLUTICASONE FUROATE\VILANTEROL TRIFENATATE
     Indication: ASTHMA
     Dosage: 1 PUFF(S), QD, 100/25
     Route: 055
     Dates: start: 20141022, end: 201412
  5. FLUTICASONE PROPIONATE+SALMETEROL XINAFOATE [Suspect]
     Active Substance: FLUTICASONE PROPIONATE\SALMETEROL XINAFOATE
     Indication: ASTHMA
     Dosage: 1 PUFF(S), BID
     Route: 048

REACTIONS (2)
  - Arrhythmia [Recovered/Resolved]
  - Dyspnoea [Recovered/Resolved]
